FAERS Safety Report 6532442-2 (Version None)
Quarter: 2010Q1

REPORT INFORMATION
  Report Type: 
  Country: None (occurrence: None)
  Receive Date: 20100111
  Receipt Date: 20100104
  Transmission Date: 20100710
  Serious: Yes (Death, Hospitalization)
  Sender: FDA-Public Use
  Company Number: GB-RANBAXY-2010RR-30290

PATIENT
  Age: 42 Year
  Sex: Female

DRUGS (1)
  1. PARACETAMOL [Suspect]
     Indication: DRUG USE FOR UNKNOWN INDICATION

REACTIONS (3)
  - ENCEPHALOPATHY [None]
  - HEPATIC FAILURE [None]
  - OVERDOSE [None]
